FAERS Safety Report 20782730 (Version 2)
Quarter: 2022Q3

REPORT INFORMATION
  Report Type: Spontaneous
  Country: IL (occurrence: IL)
  Receive Date: 20220504
  Receipt Date: 20220810
  Transmission Date: 20221026
  Serious: Yes (Other)
  Sender: FDA-Public Use
  Company Number: IL-SA-SAC20220429001325

PATIENT
  Sex: Male

DRUGS (1)
  1. PRALUENT [Suspect]
     Active Substance: ALIROCUMAB
     Indication: Product used for unknown indication
     Dosage: 1 DF, QOW
     Dates: start: 20220324

REACTIONS (3)
  - Tracheitis obstructive [Unknown]
  - Asphyxia [Unknown]
  - Dyspnoea [Unknown]
